FAERS Safety Report 17120116 (Version 2)
Quarter: 2019Q4

REPORT INFORMATION
  Report Type: Spontaneous
  Country: NZ (occurrence: NZ)
  Receive Date: 20191206
  Receipt Date: 20191211
  Transmission Date: 20200122
  Serious: Yes (Hospitalization, Disabling, Other)
  Sender: FDA-Public Use
  Company Number: NVSC2019NZ010396

PATIENT
  Sex: Male
  Weight: 86 kg

DRUGS (15)
  1. BINOCRIT 3000 IU - 10.000 IU [Suspect]
     Active Substance: ERYTHROPOIETIN
     Dosage: 3000 IU, QW (STRENGTH: 3000 IU/ 0.3ML)
     Route: 058
     Dates: start: 20190520
  2. ASPIRIN. [Concomitant]
     Active Substance: ASPIRIN
     Indication: PRODUCT USED FOR UNKNOWN INDICATION
     Dosage: 100 MG, QD
     Route: 048
  3. BINOCRIT 3000 IU - 10.000 IU [Suspect]
     Active Substance: ERYTHROPOIETIN
     Dosage: 3000 IU, QW (STRENGTH: 3000 IU/ 0.3ML)
     Route: 058
     Dates: start: 20190819
  4. BINOCRIT 3000 IU - 10.000 IU [Suspect]
     Active Substance: ERYTHROPOIETIN
     Dosage: 8000 ML (12 SYRINGES IN TOTAL, FOUR USED)
     Route: 058
  5. BINOCRIT 3000 IU - 10.000 IU [Suspect]
     Active Substance: ERYTHROPOIETIN
     Dosage: 8000 ML (12 SYRINGES, 10 USED)
     Route: 058
  6. BENDROFLUAZIDE [Concomitant]
     Active Substance: BENDROFLUMETHIAZIDE
     Indication: PRODUCT USED FOR UNKNOWN INDICATION
     Dosage: 5 MG, QD
     Route: 048
  7. BINOCRIT 3000 IU - 10.000 IU [Suspect]
     Active Substance: ERYTHROPOIETIN
     Dosage: 3000 OT
     Route: 058
  8. MAGNESIUM [Concomitant]
     Active Substance: MAGNESIUM
     Indication: PRODUCT USED FOR UNKNOWN INDICATION
     Dosage: 311 MG, QD
     Route: 065
  9. QUINAPRIL. [Concomitant]
     Active Substance: QUINAPRIL
     Indication: PRODUCT USED FOR UNKNOWN INDICATION
     Dosage: 5 MG, QD
     Route: 065
  10. FUROSEMIDE. [Concomitant]
     Active Substance: FUROSEMIDE
     Indication: PRODUCT USED FOR UNKNOWN INDICATION
     Dosage: 250 MG, PRN
     Route: 065
  11. BINOCRIT 3000 IU - 10.000 IU [Suspect]
     Active Substance: ERYTHROPOIETIN
     Dosage: UNK
     Route: 065
  12. MYCOPHENOLATE MOFETIL. [Suspect]
     Active Substance: MYCOPHENOLATE MOFETIL
     Indication: FOCAL SEGMENTAL GLOMERULOSCLEROSIS
     Dosage: UNK, QD
     Route: 048
     Dates: start: 20161117, end: 20161122
  13. BINOCRIT 3000 IU - 10.000 IU [Suspect]
     Active Substance: ERYTHROPOIETIN
     Indication: NEPHROGENIC ANAEMIA
     Dosage: 3000 IU, QW (STRENGTH: 3000 IU/ 0.3ML)
     Route: 058
     Dates: start: 20190401
  14. BINOCRIT 3000 IU - 10.000 IU [Suspect]
     Active Substance: ERYTHROPOIETIN
     Dosage: 3000 IU, QW (STRENGTH: 3000 IU/ 0.3ML)
     Route: 058
     Dates: start: 20191008
  15. ATORVASTATIN [Concomitant]
     Active Substance: ATORVASTATIN
     Indication: PRODUCT USED FOR UNKNOWN INDICATION
     Dosage: 40 MG, QD
     Route: 048

REACTIONS (6)
  - Hypoparathyroidism secondary [Recovering/Resolving]
  - Anaemia [Unknown]
  - Otitis media [Recovering/Resolving]
  - Malnutrition [Recovered/Resolved]
  - Aplasia pure red cell [Not Recovered/Not Resolved]
  - Blood count abnormal [Not Recovered/Not Resolved]
